FAERS Safety Report 25412481 (Version 1)
Quarter: 2025Q2

REPORT INFORMATION
  Report Type: Spontaneous
  Country: US (occurrence: None)
  Receive Date: 20250606
  Receipt Date: 20250606
  Transmission Date: 20250717
  Serious: Yes (Death, Hospitalization)
  Sender: FDA-CTU
  Company Number: None

PATIENT
  Age: 51 Year
  Sex: Female
  Weight: 69.6 kg

DRUGS (1)
  1. ENFORTUMAB VEDOTIN [Suspect]
     Active Substance: ENFORTUMAB VEDOTIN
     Indication: Rectal adenocarcinoma
     Route: 042
     Dates: start: 20250509, end: 20250516

REACTIONS (7)
  - Rash maculo-papular [None]
  - Cardio-respiratory arrest [None]
  - Cardiac arrest [None]
  - Acidosis [None]
  - Septic shock [None]
  - Multiple organ dysfunction syndrome [None]
  - Dialysis [None]

NARRATIVE: CASE EVENT DATE: 20250528
